FAERS Safety Report 4469241-1 (Version None)
Quarter: 2004Q4

REPORT INFORMATION
  Report Type: 
  Country: None (occurrence: None)
  Receive Date: 20041008
  Receipt Date: 20030912
  Transmission Date: 20050328
  Serious: No
  Sender: FDA-Public Use
  Company Number: US-BRISTOL-MYERS SQUIBB COMPANY-12381687

PATIENT
  Age: 10 Day
  Sex: Male
  Weight: 1 kg

DRUGS (2)
  1. CAFCIT [Suspect]
     Route: 042
     Dates: start: 20030912
  2. DEXTROSE [Concomitant]

REACTIONS (1)
  - MEDICATION ERROR [None]
